FAERS Safety Report 8482904-6 (Version None)
Quarter: 2012Q3

REPORT INFORMATION
  Report Type: 
  Country: None (occurrence: None)
  Receive Date: 20120702
  Receipt Date: 20120621
  Transmission Date: 20120928
  Serious: Yes (Other)
  Sender: FDA-Public Use
  Company Number: FR-ELI_LILLY_AND_COMPANY-FR201205000425

PATIENT
  Sex: Female
  Weight: 68 kg

DRUGS (5)
  1. CACIT D3 [Concomitant]
     Indication: OSTEOPOROSIS
     Dosage: UNK
     Dates: start: 20101001
  2. LEVOTHYROXINE SODIUM [Concomitant]
     Indication: HYPOTHYROIDISM
     Dosage: 75 DF, UNK
  3. ISOPTIN [Concomitant]
     Indication: HYPERTENSION
     Dosage: 120 DF, UNK
  4. EUPRESSYL [Concomitant]
     Indication: HYPERTENSION
     Dosage: 90 DF, UNK
  5. FORTEO [Suspect]
     Indication: OSTEOPOROSIS
     Dosage: 20 UG, QD
     Route: 058
     Dates: start: 20101101, end: 20110929

REACTIONS (4)
  - JAW DISORDER [None]
  - VENOUS THROMBOSIS LIMB [None]
  - PAIN [None]
  - THROMBOPHLEBITIS [None]
